FAERS Safety Report 7755193-5 (Version None)
Quarter: 2011Q3

REPORT INFORMATION
  Report Type: 
  Country: None (occurrence: None)
  Receive Date: 20110916
  Receipt Date: 20110629
  Transmission Date: 20111222
  Serious: No
  Sender: FDA-Public Use
  Company Number: US-GLAXOSMITHKLINE-A0933886A

PATIENT
  Age: 20 Year

DRUGS (4)
  1. VITAMIN TAB [Concomitant]
  2. PREDNISONE [Concomitant]
     Dosage: 5MG PER DAY
  3. BIRTH CONTROL PILLS [Concomitant]
  4. PROMACTA [Suspect]
     Indication: IDIOPATHIC THROMBOCYTOPENIC PURPURA
     Dosage: 25MG SEE DOSAGE TEXT
     Route: 048
     Dates: start: 20110607

REACTIONS (2)
  - DYSGEUSIA [None]
  - PLATELET COUNT DECREASED [None]
